FAERS Safety Report 17833539 (Version 1)
Quarter: 2020Q2

REPORT INFORMATION
  Report Type: Spontaneous
  Country: US (occurrence: US)
  Receive Date: 20200527
  Receipt Date: 20200527
  Transmission Date: 20200714
  Serious: Yes (Hospitalization)
  Sender: FDA-Public Use
  Company Number: None

PATIENT
  Age: 82 Year
  Sex: Female
  Weight: 50.9 kg

DRUGS (1)
  1. REMDESIVIR INJECTION [Suspect]
     Active Substance: REMDESIVIR
     Indication: COVID-19
     Dosage: ?          OTHER FREQUENCY:ONCE;?
     Route: 044
     Dates: start: 20200522, end: 20200522

REACTIONS (8)
  - Myalgia [None]
  - Headache [None]
  - Heart rate increased [None]
  - Pain [None]
  - Pruritus [None]
  - Blood pressure increased [None]
  - Rash papular [None]
  - Migraine [None]

NARRATIVE: CASE EVENT DATE: 20200522
